FAERS Safety Report 8559114-7 (Version None)
Quarter: 2012Q3

REPORT INFORMATION
  Report Type: 
  Country: None (occurrence: None)
  Receive Date: 20120802
  Receipt Date: 20120720
  Transmission Date: 20120928
  Serious: No
  Sender: FDA-Public Use
  Company Number: US-BIOGENIDEC-2012BI027297

PATIENT
  Age: 64 Year
  Sex: Female

DRUGS (5)
  1. AVONEX [Suspect]
     Route: 030
     Dates: start: 20120718
  2. AVONEX [Suspect]
     Route: 030
     Dates: start: 20030101, end: 20120401
  3. AVONEX [Suspect]
     Indication: MULTIPLE SCLEROSIS
     Route: 030
     Dates: start: 20000101, end: 20030101
  4. AVONEX [Suspect]
     Route: 030
     Dates: start: 20120601, end: 20120718
  5. TYLENOL (CAPLET) [Concomitant]
     Indication: PREMEDICATION

REACTIONS (6)
  - MUSCLE TWITCHING [None]
  - INJECTION SITE DISCOMFORT [None]
  - INJECTION SITE HAEMATOMA [None]
  - INFLUENZA LIKE ILLNESS [None]
  - DEPRESSION [None]
  - INCREASED TENDENCY TO BRUISE [None]
